FAERS Safety Report 16551742 (Version 1)
Quarter: 2019Q3

REPORT INFORMATION
  Report Type: Spontaneous
  Country: US (occurrence: US)
  Receive Date: 20190529
  Receipt Date: 20190529
  Transmission Date: 20191004
  Serious: Yes (Hospitalization)
  Sender: FDA-Public Use
  Company Number: None

PATIENT
  Age: 85 Year
  Sex: Female
  Weight: 46.27 kg

DRUGS (1)
  1. WARFARIN 2MG [Suspect]
     Active Substance: WARFARIN
     Indication: THROMBOSIS PROPHYLAXIS
     Route: 048
     Dates: start: 20190417, end: 20190509

REACTIONS (3)
  - Anaemia [None]
  - Anticoagulation drug level above therapeutic [None]
  - Transfusion [None]

NARRATIVE: CASE EVENT DATE: 20190517
